FAERS Safety Report 21456640 (Version 1)
Quarter: 2022Q4

REPORT INFORMATION
  Report Type: Spontaneous
  Country: KG (occurrence: None)
  Receive Date: 20221014
  Receipt Date: 20221014
  Transmission Date: 20230113
  Serious: Yes (Other)
  Sender: FDA-Public Use
  Company Number: KG-ROCHE-3196720

PATIENT
  Age: 7 Year
  Sex: Male

DRUGS (1)
  1. HEMLIBRA [Suspect]
     Active Substance: EMICIZUMAB-KXWH
     Indication: Product used for unknown indication
     Dosage: TWO INJECTIONS (1X 30 MG AND 1X 60MG VIALS)
     Route: 065

REACTIONS (2)
  - Intra-abdominal haematoma [Recovered/Resolved]
  - Injection site pain [Recovered/Resolved]
